FAERS Safety Report 23026498 (Version 1)
Quarter: 2023Q4

REPORT INFORMATION
  Report Type: Report from Study
  Country: CA (occurrence: CA)
  Receive Date: 20231004
  Receipt Date: 20231004
  Transmission Date: 20240109
  Serious: Yes (Life-Threatening, Hospitalization)
  Sender: FDA-Public Use
  Company Number: CA-002147023-PHHY2017CA115763

PATIENT
  Age: 57 Year
  Sex: Female

DRUGS (3)
  1. FINGOLIMOD [Suspect]
     Active Substance: FINGOLIMOD
     Dosage: 0.5 MG 2 DOSE EVERY N/A N/A
     Route: 065
     Dates: start: 20200317
  2. FINGOLIMOD [Suspect]
     Active Substance: FINGOLIMOD
     Dosage: 1 DF, QOD
     Route: 048
  3. FINGOLIMOD [Suspect]
     Active Substance: FINGOLIMOD
     Indication: Relapsing-remitting multiple sclerosis
     Dosage: UNK
     Route: 048
     Dates: start: 20170731

REACTIONS (9)
  - Accident [Unknown]
  - Pain [Recovering/Resolving]
  - Gastrointestinal disorder [Unknown]
  - Disturbance in attention [Unknown]
  - Alopecia [Unknown]
  - Depressed mood [Unknown]
  - Fatigue [Unknown]
  - Eczema [Unknown]
  - Off label use [Unknown]

NARRATIVE: CASE EVENT DATE: 20170801
